FAERS Safety Report 4985597-5 (Version None)
Quarter: 2006Q2

REPORT INFORMATION
  Report Type: 
  Country: None (occurrence: None)
  Receive Date: 20060426
  Receipt Date: 20060426
  Transmission Date: 20061013
  Serious: Yes (Other)
  Sender: FDA-Public Use
  Company Number: None

PATIENT
  Sex: Female
  Weight: 62 kg

DRUGS (2)
  1. GEMCITABINE [Suspect]
     Indication: BREAST CANCER
     Dosage: 1680 MG
     Dates: start: 20060410, end: 20060410
  2. PACLITAXEL [Suspect]
     Dosage: 210 MG
     Dates: start: 20060410, end: 20060410

REACTIONS (1)
  - NEUTROPHIL COUNT DECREASED [None]
